FAERS Safety Report 4550297-2 (Version None)
Quarter: 2004Q4

REPORT INFORMATION
  Report Type: 
  Country: None (occurrence: None)
  Receive Date: 20041217
  Receipt Date: 20040805
  Transmission Date: 20050328
  Serious: No
  Sender: FDA-Public Use
  Company Number: 2004-BP-05129BP

PATIENT
  Age: 55 Year
  Sex: Female

DRUGS (20)
  1. SPIRIVA [Suspect]
     Indication: CHRONIC OBSTRUCTIVE AIRWAYS DISEASE
     Dosage: 18 MCG (18 MCG), IH
     Route: 055
     Dates: start: 20040528
  2. SPIRIVA [Suspect]
     Indication: ASTHMA
  3. SPIRIVA [Suspect]
     Indication: WHEEZING
  4. SINGULAIR [Concomitant]
  5. FLOVENT [Concomitant]
  6. SEREVENT [Concomitant]
  7. DUONEB [Concomitant]
  8. LASIX [Concomitant]
  9. PROTONIX [Concomitant]
  10. METHOTREXADE (METHOTREXATE) [Concomitant]
  11. EMBREL (ETANERCEPT) [Concomitant]
  12. ZESTRIL [Concomitant]
  13. METFORMIN HCL [Concomitant]
  14. KLOR-CON [Concomitant]
  15. PREDNISONE [Concomitant]
  16. THERAGRAN M [Concomitant]
  17. ALEVE [Concomitant]
  18. ALBUTEROL NEBULIZER (SALBUTAMOL) [Concomitant]
  19. HUMULIN 70/30 [Concomitant]
  20. GLUCOPHAGE [Concomitant]

REACTIONS (1)
  - LARYNGITIS [None]
